FAERS Safety Report 14457805 (Version 1)
Quarter: 2018Q1

REPORT INFORMATION
  Report Type: Spontaneous
  Country: US (occurrence: US)
  Receive Date: 20180130
  Receipt Date: 20180130
  Transmission Date: 20180509
  Serious: No
  Sender: FDA-Public Use
  Company Number: US-BAYER-2018-017980

PATIENT
  Age: 58 Year
  Sex: Female

DRUGS (7)
  1. MELATONIN [Concomitant]
     Active Substance: MELATONIN
  2. ALEVE [Suspect]
     Active Substance: NAPROXEN SODIUM
     Indication: PAIN
     Dosage: UNK
     Route: 048
     Dates: start: 20180126
  3. ALEVE [Suspect]
     Active Substance: NAPROXEN SODIUM
     Indication: ANALGESIC THERAPY
  4. KLONOPIN [Concomitant]
     Active Substance: CLONAZEPAM
  5. AMBIEN [Concomitant]
     Active Substance: ZOLPIDEM TARTRATE
  6. LAMICTAL [Concomitant]
     Active Substance: LAMOTRIGINE
  7. ABILIFY [Concomitant]
     Active Substance: ARIPIPRAZOLE

REACTIONS (1)
  - Product use issue [Recovered/Resolved]

NARRATIVE: CASE EVENT DATE: 20180127
